FAERS Safety Report 7719015-0 (Version None)
Quarter: 2011Q3

REPORT INFORMATION
  Report Type: 
  Country: None (occurrence: None)
  Receive Date: 20110830
  Receipt Date: 20110825
  Transmission Date: 20111222
  Serious: Yes (Other)
  Sender: FDA-Public Use
  Company Number: CH-GLAXOSMITHKLINE-B0743107A

PATIENT
  Age: 37 Year
  Sex: Female

DRUGS (6)
  1. REQUIP [Suspect]
     Indication: EXTRAPYRAMIDAL DISORDER
     Route: 065
     Dates: end: 20110223
  2. ZOLPIDEM [Suspect]
     Indication: PRODUCT USED FOR UNKNOWN INDICATION
     Route: 065
  3. LEVOTHYROXINE SODIUM [Concomitant]
     Indication: HYPOTHYROIDISM
     Dosage: .1MG PER DAY
     Dates: end: 20110412
  4. DEANXIT [Suspect]
     Indication: PRODUCT USED FOR UNKNOWN INDICATION
     Dosage: 10MG PER DAY
     Route: 065
  5. XANAX [Suspect]
     Indication: PRODUCT USED FOR UNKNOWN INDICATION
     Dosage: .125MG PER DAY
     Route: 065
     Dates: end: 20110223
  6. BEROCCA C [Concomitant]
     Dates: end: 20110412

REACTIONS (2)
  - MATERNAL EXPOSURE DURING PREGNANCY [None]
  - ABORTION MISSED [None]
